FAERS Safety Report 13540712 (Version 1)
Quarter: 2017Q2

REPORT INFORMATION
  Report Type: Spontaneous
  Country: CA (occurrence: CA)
  Receive Date: 20170512
  Receipt Date: 20170512
  Transmission Date: 20170830
  Serious: Yes (Life-Threatening, Hospitalization, Other)
  Sender: FDA-Public Use
  Company Number: CA-JNJFOC-20170508182

PATIENT
  Sex: Female

DRUGS (8)
  1. CRESTOR [Concomitant]
     Active Substance: ROSUVASTATIN CALCIUM
     Route: 065
  2. ASPIRIN. [Concomitant]
     Active Substance: ASPIRIN
     Route: 065
  3. JANUVIA [Concomitant]
     Active Substance: SITAGLIPTIN PHOSPHATE
     Route: 065
  4. INVOKANA [Suspect]
     Active Substance: CANAGLIFLOZIN
     Indication: DIABETES MELLITUS
     Route: 048
  5. SERTRALINE [Concomitant]
     Active Substance: SERTRALINE HYDROCHLORIDE
     Route: 065
  6. GLYBURIDE. [Concomitant]
     Active Substance: GLYBURIDE
     Route: 065
  7. METFORMIN [Concomitant]
     Active Substance: METFORMIN HYDROCHLORIDE
     Route: 065
  8. VITAMIN B12 [Concomitant]
     Active Substance: CYANOCOBALAMIN
     Route: 065

REACTIONS (6)
  - Diabetic ketoacidosis [Recovering/Resolving]
  - General physical health deterioration [Recovering/Resolving]
  - Anion gap increased [Recovering/Resolving]
  - Blood glucose increased [Recovering/Resolving]
  - Metabolic acidosis [Recovering/Resolving]
  - Urine ketone body present [Recovering/Resolving]
